FAERS Safety Report 18042336 (Version 2)
Quarter: 2022Q3

REPORT INFORMATION
  Report Type: Spontaneous
  Country: JP (occurrence: JP)
  Receive Date: 20200720
  Receipt Date: 20220713
  Transmission Date: 20221027
  Serious: Yes (Hospitalization, Other)
  Sender: FDA-Public Use
  Company Number: JP-GSKNCCC-CASE-00918334_AE-27310

PATIENT

DRUGS (4)
  1. LAMICTAL [Suspect]
     Active Substance: LAMOTRIGINE
     Indication: Epilepsy
     Dosage: UNK
     Route: 048
     Dates: start: 2017, end: 2019
  2. LAMICTAL [Suspect]
     Active Substance: LAMOTRIGINE
     Dosage: UNK
     Route: 048
     Dates: start: 202004
  3. LAMICTAL [Suspect]
     Active Substance: LAMOTRIGINE
     Dosage: 200 MG
     Route: 048
     Dates: start: 2020
  4. RISPERIDONE [Concomitant]
     Active Substance: RISPERIDONE
     Indication: Epilepsy
     Dosage: UNK
     Dates: start: 2017

REACTIONS (3)
  - Epilepsy [Unknown]
  - Dementia [Unknown]
  - Therapy cessation [Unknown]

NARRATIVE: CASE EVENT DATE: 20200401
